FAERS Safety Report 7516013-7 (Version None)
Quarter: 2011Q2

REPORT INFORMATION
  Report Type: 
  Country: None (occurrence: None)
  Receive Date: 20110601
  Receipt Date: 20110518
  Transmission Date: 20111010
  Serious: Yes (Death, Disabling)
  Sender: FDA-Public Use
  Company Number: JP-CELGENEUS-087-21880-11030657

PATIENT
  Sex: Male

DRUGS (4)
  1. REVLIMID [Suspect]
     Dosage: 10 MILLIGRAM
     Route: 048
     Dates: start: 20101230, end: 20110102
  2. FOY [Concomitant]
     Dosage: 1000 MILLIGRAM
     Route: 041
     Dates: start: 20110103, end: 20110104
  3. RECOMODULIN [Concomitant]
     Dosage: 25600 IU (INTERNATIONAL UNIT)
     Route: 041
     Dates: start: 20101231, end: 20110103
  4. HEPARIN [Concomitant]
     Dosage: 7800 IU (INTERNATIONAL UNIT)
     Route: 041
     Dates: start: 20110104, end: 20110110

REACTIONS (3)
  - ACUTE MYELOID LEUKAEMIA [None]
  - RENAL FAILURE [None]
  - DISSEMINATED INTRAVASCULAR COAGULATION [None]
